FAERS Safety Report 6674658-0 (Version None)
Quarter: 2010Q2

REPORT INFORMATION
  Report Type: 
  Country: None (occurrence: None)
  Receive Date: 20100409
  Receipt Date: 20100407
  Transmission Date: 20101027
  Serious: Yes (Life-Threatening)
  Sender: FDA-Public Use
  Company Number: GB-ASTRAZENECA-2010SE15237

PATIENT
  Age: 7 Year
  Sex: Male
  Weight: 29.5 kg

DRUGS (11)
  1. BUPIVACAINE HCL [Suspect]
     Indication: ANALGESIC THERAPY
     Route: 065
  2. PROPOFOL [Suspect]
     Indication: ANAESTHESIA
     Route: 042
  3. DESFLURANE [Suspect]
     Indication: ANAESTHESIA
     Route: 065
  4. FENTANYL-100 [Suspect]
     Indication: ANAESTHESIA
     Route: 042
  5. MORPHINE [Suspect]
     Indication: ANALGESIC THERAPY
     Route: 042
  6. PARACETAMOL [Suspect]
     Indication: ANALGESIC THERAPY
     Route: 042
  7. ADRENALINE [Suspect]
     Indication: ANALGESIC THERAPY
  8. ATRACURIUM BESYLATE [Suspect]
     Indication: ANAESTHESIA
     Route: 042
  9. DEXAMETHASONE [Suspect]
     Indication: ANAESTHESIA
     Route: 042
  10. NITROUS OXIDE [Suspect]
     Indication: ANAESTHESIA
     Route: 065
  11. ONDANSETRON [Suspect]
     Indication: ANAESTHESIA
     Route: 042

REACTIONS (6)
  - ASTHENIA [None]
  - HYPOXIA [None]
  - OXYGEN SATURATION DECREASED [None]
  - RESPIRATION ABNORMAL [None]
  - RESPIRATORY ACIDOSIS [None]
  - RESPIRATORY DISTRESS [None]
